FAERS Safety Report 11089867 (Version 1)
Quarter: 2015Q2

REPORT INFORMATION
  Report Type: Spontaneous
  Country: US (occurrence: None)
  Receive Date: 20150501
  Receipt Date: 20150501
  Transmission Date: 20150821
  Serious: Yes (Hospitalization)
  Sender: FDA-Public Use
  Company Number: IPC201504-000244

PATIENT
  Age: 55 Year
  Sex: Male
  Weight: 124.7 kg

DRUGS (6)
  1. LORAZEPAM. [Concomitant]
     Active Substance: LORAZEPAM
  2. MIDAZOLAM [Concomitant]
     Active Substance: MIDAZOLAM\MIDAZOLAM HYDROCHLORIDE
  3. CHLORDIAZEPOXIDE [Concomitant]
     Active Substance: CHLORDIAZEPOXIDE
  4. HYDROCHLOROTHIAZIDE (HYDROCHLOROTHIAZIDE) (HYDROCHLOROTHIAZIDE) [Suspect]
     Active Substance: HYDROCHLOROTHIAZIDE
     Indication: HYPERTENSION
     Route: 048
  5. POTASSIUM CHLORIDE. [Concomitant]
     Active Substance: POTASSIUM CHLORIDE
  6. METOPROLOL [Concomitant]
     Active Substance: METOPROLOL

REACTIONS (9)
  - Amnesia [None]
  - Septic shock [None]
  - Hypotension [None]
  - Blood bilirubin increased [None]
  - Shoshin beriberi [None]
  - Blood potassium decreased [None]
  - Blood pressure increased [None]
  - Heart rate increased [None]
  - Blood lactic acid increased [None]
